FAERS Safety Report 7014345-2 (Version None)
Quarter: 2010Q3

REPORT INFORMATION
  Report Type: 
  Country: None (occurrence: None)
  Receive Date: 20100924
  Receipt Date: 20100924
  Transmission Date: 20110219
  Serious: Yes (Other)
  Sender: FDA-Public Use
  Company Number: None

PATIENT
  Age: 69 Year
  Sex: Female

DRUGS (1)
  1. FILGRASTIM [Suspect]
     Indication: NEUTROPENIA
     Dosage: 480MCG ONCE SQ
     Route: 058
     Dates: start: 20100901, end: 20100901

REACTIONS (1)
  - PRURITUS [None]
